FAERS Safety Report 11022220 (Version 1)
Quarter: 2015Q2

REPORT INFORMATION
  Report Type: Spontaneous
  Country: FR (occurrence: FR)
  Receive Date: 20150413
  Receipt Date: 20150413
  Transmission Date: 20150821
  Serious: Yes (Hospitalization)
  Sender: FDA-Public Use
  Company Number: FR-GE HEALTHCARE MEDICAL DIAGNOSTICS-OMPQ-PR-1504S-0328

PATIENT
  Age: 91 Year
  Sex: Female

DRUGS (12)
  1. LEVOTHYROX [Concomitant]
     Active Substance: LEVOTHYROXINE
  2. AERIUS [Concomitant]
     Active Substance: DESLORATADINE
  3. NORSET [Concomitant]
     Active Substance: MIRTAZAPINE
  4. OMNIPAQUE [Suspect]
     Active Substance: IOHEXOL
     Indication: PRODUCT USED FOR UNKNOWN INDICATION
     Route: 042
     Dates: start: 20141224, end: 20141224
  5. CLAMOXYL [Suspect]
     Active Substance: AMOXICILLIN\CLAVULANIC ACID
     Route: 042
     Dates: start: 20141222
  6. MINI SINTROM [Concomitant]
  7. LASILIX [Concomitant]
     Active Substance: FUROSEMIDE
  8. LASILIX [Suspect]
     Active Substance: FUROSEMIDE
     Route: 042
     Dates: start: 20141218, end: 20141228
  9. ALDACTONE [Concomitant]
     Active Substance: SPIRONOLACTONE
  10. OMNIPAQUE [Suspect]
     Active Substance: IOHEXOL
     Indication: DIAGNOSTIC PROCEDURE
  11. GENTAMYCINE [Suspect]
     Active Substance: GENTAMICIN
     Route: 042
     Dates: start: 20141222, end: 20141225
  12. SERETIDE [Concomitant]
     Active Substance: FLUTICASONE FUROATE\SALMETEROL XINAFOATE

REACTIONS (1)
  - Acute kidney injury [Recovered/Resolved]

NARRATIVE: CASE EVENT DATE: 20141227
